FAERS Safety Report 14216240 (Version 2)
Quarter: 2017Q4

REPORT INFORMATION
  Report Type: Spontaneous
  Country: US (occurrence: US)
  Receive Date: 20171122
  Receipt Date: 20171128
  Transmission Date: 20180321
  Serious: Yes (Hospitalization)
  Sender: FDA-Public Use
  Company Number: US-FRESENIUS MEDICAL CARE RENAL THERAPIES GROUP-FMC-1711-001424

PATIENT
  Age: 50 Year
  Sex: Female
  Weight: 96 kg

DRUGS (18)
  1. AMLODIPINE [Concomitant]
     Active Substance: AMLODIPINE BESYLATE
  2. ASPRIN [Concomitant]
     Active Substance: ASPIRIN
  3. HUMALOG [Concomitant]
     Active Substance: INSULIN LISPRO
  4. PAROXETINE. [Concomitant]
     Active Substance: PAROXETINE
  5. BISACODYL. [Concomitant]
     Active Substance: BISACODYL
  6. AMITRIPTYLINE [Concomitant]
     Active Substance: AMITRIPTYLINE
  7. CALCITRIOL. [Concomitant]
     Active Substance: CALCITRIOL
  8. MAGNESIUM OXIDE. [Concomitant]
     Active Substance: MAGNESIUM OXIDE
  9. OMEPRAZOLE. [Concomitant]
     Active Substance: OMEPRAZOLE
  10. CARVEDILOL. [Concomitant]
     Active Substance: CARVEDILOL
  11. GABAPENTIN. [Concomitant]
     Active Substance: GABAPENTIN
  12. LANTUS [Concomitant]
     Active Substance: INSULIN GLARGINE
  13. POTASSIUM CHLORIDE. [Concomitant]
     Active Substance: POTASSIUM CHLORIDE
  14. HYDRALAZINE [Concomitant]
     Active Substance: HYDRALAZINE HYDROCHLORIDE
  15. CALCIUM ACETATE. [Concomitant]
     Active Substance: CALCIUM ACETATE
  16. PLAVIX [Concomitant]
     Active Substance: CLOPIDOGREL BISULFATE
  17. ATORVASTATIN [Concomitant]
     Active Substance: ATORVASTATIN
  18. DELFLEX WITH DEXTROSE 4.25% LOW MAGNESIUM LOW CALCIUM [Suspect]
     Active Substance: CALCIUM CHLORIDE\DEXTROSE\MAGNESIUM CHLORIDE\SODIUM CHLORIDE\SODIUM LACTATE
     Indication: END STAGE RENAL DISEASE
     Dosage: 7 TIMES A WEEK, 5 EXCHANGES FILL VOLUME 1500ML AND LAST FILL 500ML?ON DIALYSIS SINCE 2015
     Route: 033
     Dates: start: 201710

REACTIONS (1)
  - Cerebrovascular accident [Recovering/Resolving]

NARRATIVE: CASE EVENT DATE: 20171113
